FAERS Safety Report 10153180 (Version 2)
Quarter: 2014Q2

REPORT INFORMATION
  Report Type: Report from Study
  Country: US (occurrence: US)
  Receive Date: 20140505
  Receipt Date: 20140523
  Transmission Date: 20141212
  Serious: Yes (Hospitalization)
  Sender: FDA-Public Use
  Company Number: US-UCBSA-120035

PATIENT
  Age: 35 Year
  Sex: Male
  Weight: 107.47 kg

DRUGS (5)
  1. VIMPAT [Suspect]
     Indication: PARTIAL SEIZURES
     Dates: start: 201402, end: 20140221
  2. VIMPAT [Suspect]
     Indication: PARTIAL SEIZURES
     Dosage: 100 MG AM AND 150 MG PM, LOT NO: 74659 AND EXPIRATION DATE: ??-FEB-2016 FOR 150 MG
     Route: 048
     Dates: start: 20140221
  3. DILANTIN [Suspect]
     Indication: EPILEPSY
     Dosage: 100 MG IN AM AND 300 MG IN PM
     Route: 048
     Dates: start: 2011, end: 20140417
  4. TOPAMAX [Concomitant]
     Indication: EPILEPSY
     Route: 048
     Dates: start: 201105
  5. KLONOPIN [Concomitant]
     Indication: EPILEPSY
     Dosage: HS
     Route: 048
     Dates: start: 201302

REACTIONS (1)
  - Toxicity to various agents [Recovered/Resolved]
